FAERS Safety Report 5747992-6 (Version None)
Quarter: 2008Q2

REPORT INFORMATION
  Report Type: 
  Country: None (occurrence: None)
  Receive Date: 20080523
  Receipt Date: 20080513
  Transmission Date: 20081010
  Serious: Yes (Hospitalization, Other)
  Sender: FDA-Public Use
  Company Number: US-ABBOTT-08P-163-0449174-00

PATIENT
  Age: 65 Year
  Sex: Female

DRUGS (21)
  1. BIAXIN [Suspect]
     Indication: BRONCHITIS
     Route: 048
     Dates: start: 20080118, end: 20080129
  2. S-1 (TS 1) (TEGAFUR, GIMERACIL, OTERACIL POTASSIUM) [Suspect]
     Indication: PANCREATIC CARCINOMA
     Dosage: CYCLE 1-2
     Route: 048
     Dates: start: 20071214
  3. S-1 (TS 1) (TEGAFUR, GIMERACIL, OTERACIL POTASSIUM) [Suspect]
     Dosage: CYCLE 3
     Route: 048
     Dates: start: 20080125
  4. BEVACIZUMAB [Suspect]
     Indication: PANCREATIC CARCINOMA
     Dosage: CYCLE 1-2
     Route: 042
     Dates: start: 20071214
  5. BEVACIZUMAB [Suspect]
     Dosage: CYCLE 3
     Route: 042
     Dates: start: 20080125, end: 20080125
  6. OXALIPLATIN [Suspect]
     Indication: PANCREATIC CARCINOMA
     Dosage: CYCLE 1-2
     Route: 042
     Dates: start: 20071214
  7. OXALIPLATIN [Suspect]
     Dosage: CYCLE 3
     Route: 042
     Dates: start: 20080125, end: 20080125
  8. DIPHENOXYLATE [Concomitant]
     Indication: ANTIDIARRHOEAL SUPPORTIVE CARE
     Dates: start: 20071228
  9. HYDROMORPHONE HCL [Concomitant]
     Indication: PAIN
     Dosage: 2-3/DAY
     Dates: start: 20070801
  10. CITALOPRAM HYDROBROMIDE [Concomitant]
     Indication: ANTIDEPRESSANT THERAPY
     Dates: start: 20070907
  11. ONDANSETRON [Concomitant]
     Indication: NAUSEA
     Dates: start: 20070815
  12. ONDANSETRON [Concomitant]
     Indication: VOMITING
  13. DRONABINOL [Concomitant]
     Indication: DRUG USE FOR UNKNOWN INDICATION
     Route: 048
     Dates: start: 20070801
  14. PANCREATIC ENZYMES [Concomitant]
     Indication: ENZYME SUPPLEMENTATION
     Route: 048
     Dates: start: 20061116
  15. APREPITANT [Concomitant]
     Indication: NAUSEA
     Route: 048
  16. APREPITANT [Concomitant]
     Indication: VOMITING
  17. DEXAMETHASONE TAB [Concomitant]
     Indication: NAUSEA
     Route: 048
     Dates: start: 20070815
  18. DEXAMETHASONE TAB [Concomitant]
     Indication: VOMITING
  19. LOPERAMIDE HCL [Concomitant]
     Indication: ANTIDIARRHOEAL SUPPORTIVE CARE
     Dates: start: 20070711
  20. PALONOSETRON [Concomitant]
     Indication: PROPHYLAXIS OF NAUSEA AND VOMITING
     Route: 042
     Dates: start: 20071214
  21. PALONOSETRON [Concomitant]

REACTIONS (13)
  - ABDOMINAL PAIN [None]
  - ANAEMIA [None]
  - CREPITATIONS [None]
  - DEHYDRATION [None]
  - DIARRHOEA [None]
  - FLATULENCE [None]
  - FUNGAL INFECTION [None]
  - INTESTINAL STENOSIS [None]
  - KLEBSIELLA INFECTION [None]
  - MESENTERIC OCCLUSION [None]
  - NEUTROPENIA [None]
  - PORTAL VEIN THROMBOSIS [None]
  - RECTAL HAEMORRHAGE [None]
